FAERS Safety Report 24194476 (Version 5)
Quarter: 2024Q3

REPORT INFORMATION
  Report Type: Spontaneous
  Country: US (occurrence: US)
  Receive Date: 20240809
  Receipt Date: 20240916
  Transmission Date: 20241016
  Serious: No
  Sender: PFIZER
  Company Number: US-PFIZER INC-202400231078

PATIENT
  Age: 30 Year
  Sex: Male

DRUGS (1)
  1. GENOTROPIN [Suspect]
     Active Substance: SOMATROPIN
     Dosage: 0.3 MG, DAILY
     Route: 058
     Dates: start: 20240719, end: 20240819

REACTIONS (2)
  - Drug dose omission by device [Unknown]
  - Device leakage [Unknown]
